FAERS Safety Report 4578843-3 (Version None)
Quarter: 2005Q1

REPORT INFORMATION
  Report Type: 
  Country: None (occurrence: None)
  Receive Date: 20050207
  Receipt Date: 20050207
  Transmission Date: 20050727
  Serious: Yes (Hospitalization)
  Sender: FDA-Public Use
  Company Number: None

PATIENT
  Sex: Female
  Weight: 86.1834 kg

DRUGS (4)
  1. CLOZARIL [Suspect]
     Dosage: 2 1/4 PO QD
     Route: 048
  2. LAMICTAL [Concomitant]
  3. ZOLOFT [Concomitant]
  4. GEMFIBROZIL [Concomitant]

REACTIONS (1)
  - PARANOIA [None]
